FAERS Safety Report 7554095-7 (Version None)
Quarter: 2011Q2

REPORT INFORMATION
  Report Type: 
  Country: None (occurrence: None)
  Receive Date: 20110617
  Receipt Date: 20110608
  Transmission Date: 20111010
  Serious: Yes (Other)
  Sender: FDA-Public Use
  Company Number: GB-MPIJNJ-2011-01624

PATIENT

DRUGS (2)
  1. DEXAMETHASONE [Concomitant]
     Indication: MULTIPLE MYELOMA
     Dosage: 20 MG, UNK
  2. VELCADE [Suspect]
     Indication: MULTIPLE MYELOMA
     Dosage: UNK
     Dates: start: 20101025, end: 20110124

REACTIONS (2)
  - DRUG INEFFECTIVE [None]
  - DISEASE PROGRESSION [None]
